FAERS Safety Report 5378314-0 (Version None)
Quarter: 2007Q3

REPORT INFORMATION
  Report Type: 
  Country: None (occurrence: None)
  Receive Date: 20070702
  Receipt Date: 20070620
  Transmission Date: 20080115
  Serious: Yes (Other)
  Sender: FDA-Public Use
  Company Number: B0476991A

PATIENT
  Age: 50 Year

DRUGS (6)
  1. MELPHALAN (FORMULATION UNKNOWN) (GENERIC) (MELPHALAN) [Suspect]
  2. FLUDARABINE PHOSPHATE [Suspect]
  3. ALEMTUZUMAB (FORMULATION UNKNOWN) (ALEMTUZUMAB) [Suspect]
  4. RADIOTHERAPY [Concomitant]
  5. CORTICOSTEROID [Concomitant]
  6. CYCLOSPORINE [Concomitant]

REACTIONS (10)
  - ACUTE GRAFT VERSUS HOST DISEASE IN SKIN [None]
  - CD4 LYMPHOCYTES DECREASED [None]
  - DIPLOPIA [None]
  - HEMIANOPIA HOMONYMOUS [None]
  - HEPATIC FAILURE [None]
  - JC VIRUS INFECTION [None]
  - MUSCULAR WEAKNESS [None]
  - PANCREATIC CARCINOMA [None]
  - PANCYTOPENIA [None]
  - PROGRESSIVE MULTIFOCAL LEUKOENCEPHALOPATHY [None]
